FAERS Safety Report 26190769 (Version 1)
Quarter: 2025Q4

REPORT INFORMATION
  Report Type: Spontaneous
  Country: US (occurrence: US)
  Receive Date: 20251223
  Receipt Date: 20251223
  Transmission Date: 20260117
  Serious: Yes (Hospitalization, Other)
  Sender: RANBAXY
  Company Number: US-SUN PHARMACEUTICAL INDUSTRIES INC-2025R1-543079

PATIENT
  Age: 49 Year
  Sex: Male

DRUGS (1)
  1. VALACYCLOVIR HYDROCHLORIDE [Suspect]
     Active Substance: VALACYCLOVIR HYDROCHLORIDE
     Indication: Herpes zoster
     Dosage: UNKNOWN
     Route: 065

REACTIONS (10)
  - Drug ineffective [Unknown]
  - Hyponatraemia [Recovering/Resolving]
  - Hyperglycaemia [Recovering/Resolving]
  - Pleocytosis [Recovering/Resolving]
  - Neurotoxicity [Unknown]
  - Toxicity to various agents [Unknown]
  - Gait disturbance [Recovering/Resolving]
  - Hallucination [Recovering/Resolving]
  - Memory impairment [Recovering/Resolving]
  - Speech disorder developmental [Recovering/Resolving]
